FAERS Safety Report 7398183-7 (Version None)
Quarter: 2011Q2

REPORT INFORMATION
  Report Type: 
  Country: None (occurrence: None)
  Receive Date: 20110406
  Receipt Date: 20110329
  Transmission Date: 20111010
  Serious: Yes (Other)
  Sender: FDA-Public Use
  Company Number: US-US-EMD SERONO, INC.-7049400

PATIENT
  Sex: Female

DRUGS (2)
  1. STEROIDS [Suspect]
  2. REBIF [Suspect]
     Indication: PRODUCT USED FOR UNKNOWN INDICATION
     Route: 058
     Dates: start: 20110128

REACTIONS (5)
  - HAEMATEMESIS [None]
  - EPISTAXIS [None]
  - COUGH [None]
  - OROPHARYNGEAL PAIN [None]
  - SINUSITIS [None]
